FAERS Safety Report 19622334 (Version 3)
Quarter: 2021Q4

REPORT INFORMATION
  Report Type: Spontaneous
  Country: US (occurrence: US)
  Receive Date: 20210728
  Receipt Date: 20211012
  Transmission Date: 20220303
  Serious: Yes (Hospitalization, Other)
  Sender: FDA-Public Use
  Company Number: US-BRISTOL-MYERS SQUIBB COMPANY-BMS-2021-072336

PATIENT
  Age: 19 Year
  Sex: Female
  Weight: 54.42 kg

DRUGS (3)
  1. ORENCIA [Suspect]
     Active Substance: ABATACEPT
     Indication: Psoriatic arthropathy
     Dosage: 500 MILLIGRAM
     Route: 042
     Dates: start: 20201215, end: 20210826
  2. ACETAMINOPHEN [Concomitant]
     Active Substance: ACETAMINOPHEN
     Indication: Product used for unknown indication
     Dosage: TWO TAB/325 MG
     Route: 048
     Dates: start: 20210703, end: 20210709
  3. DEXAMETHASONE [Concomitant]
     Active Substance: DEXAMETHASONE
     Indication: Product used for unknown indication
     Dosage: 4 MILLIGRAM
     Route: 042
     Dates: start: 20210703, end: 20210709

REACTIONS (4)
  - Psoriatic arthropathy [Unknown]
  - Urticaria [Unknown]
  - Pruritus [Unknown]
  - Throat irritation [Unknown]

NARRATIVE: CASE EVENT DATE: 20210709
